FAERS Safety Report 26207167 (Version 1)
Quarter: 2025Q4

REPORT INFORMATION
  Report Type: Spontaneous
  Country: GB (occurrence: GB)
  Receive Date: 20251229
  Receipt Date: 20251229
  Transmission Date: 20260117
  Serious: Yes (Other)
  Sender: TEVA
  Company Number: None

PATIENT
  Age: 69 Year
  Sex: Female
  Weight: 130 kg

DRUGS (19)
  1. DOXYCYCLINE [Suspect]
     Active Substance: DOXYCYCLINE
     Indication: Product used for unknown indication
     Dosage: TAKE TWO CAPSULES NOW AND THEN TAKE ONE CAPSULE...
     Route: 065
     Dates: start: 20251216
  2. SENNA [Concomitant]
     Active Substance: SENNOSIDES
     Indication: Product used for unknown indication
     Dosage: DAILY DOSAGE: 1 DOSAGE FORM; AT NIGHT
     Route: 065
     Dates: start: 20241003
  3. SIMVASTATIN [Concomitant]
     Active Substance: SIMVASTATIN
     Indication: Product used for unknown indication
     Dosage: DAILY DOSAGE: 60MG AT NIGHT
     Dates: start: 20241003
  4. RIVAROXABAN [Concomitant]
     Active Substance: RIVAROXABAN
     Indication: Product used for unknown indication
     Dosage: STROKE/EMBOLISM PROPHYLAXIS: DAILY DOSAGE: 1 DOSAGE FORM? CO...
     Route: 065
     Dates: start: 20241003
  5. MOUNJARO [Concomitant]
     Active Substance: TIRZEPATIDE
     Indication: Product used for unknown indication
     Dosage: ONE DOSE ONCE WEEKLY (PEN CONTAINS 4 DOSES)
     Dates: start: 20251031
  6. CYANOCOBALAMIN [Concomitant]
     Active Substance: CYANOCOBALAMIN
     Indication: Product used for unknown indication
     Dosage: DAILY DOSAGE: 1 DOSAGE FORM
     Dates: start: 20251201
  7. DULOXETINE [Concomitant]
     Active Substance: DULOXETINE
     Indication: Pain in extremity
     Dosage: DAILY DOSAGE: 2 DOSAGE FORM
     Dates: start: 20241003
  8. BISOPROLOL [Concomitant]
     Active Substance: BISOPROLOL
     Indication: Product used for unknown indication
     Dosage: DAILY DOSAGE: 1 DOSAGE FORM. CAN CRUSH AND DISPERSE IN WATER
     Dates: start: 20241003
  9. RAMIPRIL [Concomitant]
     Active Substance: RAMIPRIL
     Indication: Product used for unknown indication
     Dosage: DAILY DOSAGE: 1 DOSAGE FORM
     Dates: start: 20241003
  10. FUROSEMIDE [Concomitant]
     Active Substance: FUROSEMIDE
     Indication: Product used for unknown indication
     Dosage: DAILY DOSAGE: 1 DOSAGE FORM EACH MORNING
     Dates: start: 20241003
  11. AMITRIPTYLINE HYDROCHLORIDE [Concomitant]
     Active Substance: AMITRIPTYLINE HYDROCHLORIDE
     Indication: Product used for unknown indication
     Dosage: TAKE ONE TABLET EACH NIGHT CAN INCREASE 1 TABLET A WEEK UP TO 3 TABLETS A NIGHT IF NOT IMPROVING ...
     Dates: start: 20251111, end: 20251209
  12. DEXTROSE [Concomitant]
     Active Substance: DEXTROSE MONOHYDRATE
     Indication: Product used for unknown indication
     Dosage: USE AS DIRECTED
     Dates: start: 20241003
  13. LERCANIDIPINE HYDROCHLORIDE [Concomitant]
     Active Substance: LERCANIDIPINE HYDROCHLORIDE
     Indication: Product used for unknown indication
     Dosage: DAILY DOSAGE: 1 DOSAGE FORM
     Dates: start: 20241003
  14. OMEPRAZOLE [Concomitant]
     Active Substance: OMEPRAZOLE
     Indication: Product used for unknown indication
     Dosage: DAILY DOSAGE: 1 DOSAGE FORM
     Dates: start: 20241003
  15. DIGOXIN [Concomitant]
     Active Substance: DIGOXIN
     Indication: Product used for unknown indication
     Dosage: DAILY DOSAGE: 1 DOSAGE FORM
     Dates: start: 20241003
  16. METFORMIN [Concomitant]
     Active Substance: METFORMIN HYDROCHLORIDE
     Indication: Product used for unknown indication
     Dosage: DAILY DOSAGE: 2 DOSAGE FORM
     Dates: start: 20241003
  17. INSULIN HUMAN [Concomitant]
     Active Substance: INSULIN HUMAN
     Indication: Product used for unknown indication
     Dosage: USE AS DIRECTED
     Dates: start: 20241003
  18. CLARITHROMYCIN [Concomitant]
     Active Substance: CLARITHROMYCIN
     Indication: Product used for unknown indication
     Dosage: DAILY DOSAGE: 2 DOSAGE FORM
     Dates: start: 20251218
  19. GLICLAZIDE [Concomitant]
     Active Substance: GLICLAZIDE
     Indication: Product used for unknown indication
     Dosage: DAILY DOSAGE: 2 DOSAGE FORM
     Dates: start: 20241003, end: 20251111

REACTIONS (2)
  - Rash pruritic [Recovering/Resolving]
  - Rash macular [Recovering/Resolving]
